FAERS Safety Report 12107241 (Version 5)
Quarter: 2016Q2

REPORT INFORMATION
  Report Type: Spontaneous
  Country: JP (occurrence: JP)
  Receive Date: 20160223
  Receipt Date: 20160510
  Transmission Date: 20160815
  Serious: Yes (Disabling, Other)
  Sender: FDA-Public Use
  Company Number: JP-BRISTOL-MYERS SQUIBB COMPANY-BMS-2016-012507

PATIENT
  Age: 73 Year
  Sex: Female
  Weight: 53 kg

DRUGS (6)
  1. DAKLINZA [Suspect]
     Active Substance: DACLATASVIR
     Indication: HEPATIC CIRRHOSIS
     Dosage: 60 MG, QD
     Route: 048
     Dates: start: 20150925, end: 20160205
  2. AMINOLEBAN EN [Concomitant]
     Active Substance: UNSPECIFIED INGREDIENT
     Indication: HEPATIC CIRRHOSIS
     Dosage: 50 G, UNK
     Route: 048
     Dates: start: 20160129
  3. FARESTON [Concomitant]
     Active Substance: TOREMIFENE CITRATE
     Indication: BREAST CANCER
     Dosage: 40 MG, QD
     Route: 048
  4. SUNVEPRA [Suspect]
     Active Substance: ASUNAPREVIR
     Indication: HEPATIC CIRRHOSIS
     Dosage: 100 MG, BID
     Route: 048
     Dates: start: 20150925, end: 20160205
  5. NEXIUM [Concomitant]
     Active Substance: ESOMEPRAZOLE MAGNESIUM
     Indication: GASTROOESOPHAGEAL REFLUX DISEASE
     Dosage: 10 MG, QD
     Route: 048
     Dates: start: 20151218
  6. ALFACALCIDOL [Concomitant]
     Active Substance: ALFACALCIDOL
     Indication: OSTEOPOROSIS
     Dosage: 1 ?G, QD
     Route: 048

REACTIONS (3)
  - Eczema [Recovered/Resolved]
  - Hepatic cirrhosis [Unknown]
  - Liver disorder [Recovered/Resolved]

NARRATIVE: CASE EVENT DATE: 20160119
